FAERS Safety Report 13656232 (Version 1)
Quarter: 2017Q2

REPORT INFORMATION
  Report Type: Spontaneous
  Country: ES (occurrence: ES)
  Receive Date: 20170615
  Receipt Date: 20170615
  Transmission Date: 20170830
  Serious: Yes (Life-Threatening, Other)
  Sender: FDA-Public Use
  Company Number: PHHY2016ES176431

PATIENT
  Sex: Male

DRUGS (2)
  1. TOBRAMYCIN. [Suspect]
     Active Substance: TOBRAMYCIN
     Indication: PSEUDOMONAS INFECTION
     Dosage: 5 MG/KG, QD
     Route: 065
  2. COLISTIN [Suspect]
     Active Substance: COLISTIN
     Indication: PSEUDOMONAS INFECTION
     Dosage: 9 MILLION IU DIVIDED INTO TWO DOSES, Q12H
     Route: 065

REACTIONS (6)
  - Renal impairment [Recovered/Resolved]
  - Neurotoxicity [Recovered/Resolved]
  - Depressed level of consciousness [Recovered/Resolved]
  - Acute phase reaction [Unknown]
  - Disorientation [Recovered/Resolved]
  - Pyrexia [Unknown]
